FAERS Safety Report 21372018 (Version 2)
Quarter: 2022Q3

REPORT INFORMATION
  Report Type: Spontaneous
  Country: US (occurrence: None)
  Receive Date: 20220923
  Receipt Date: 20220927
  Transmission Date: 20221027
  Serious: Yes (Other)
  Sender: FDA-Public Use
  Company Number: 2022A319393

PATIENT
  Age: 59 Year
  Sex: Female
  Weight: 71.7 kg

DRUGS (1)
  1. TEZSPIRE [Suspect]
     Active Substance: TEZEPELUMAB-EKKO
     Indication: Asthma
     Dosage: 210 MG/1.91 ML
     Route: 058
     Dates: start: 20220804, end: 20220829

REACTIONS (3)
  - Limb discomfort [Recovering/Resolving]
  - Burning sensation [Recovering/Resolving]
  - Insomnia [Recovering/Resolving]

NARRATIVE: CASE EVENT DATE: 20220807
